FAERS Safety Report 6755924-7 (Version None)
Quarter: 2010Q2

REPORT INFORMATION
  Report Type: 
  Country: None (occurrence: None)
  Receive Date: 20100604
  Receipt Date: 20100525
  Transmission Date: 20101027
  Serious: Yes (Other)
  Sender: FDA-Public Use
  Company Number: JP-BRISTOL-MYERS SQUIBB COMPANY-15132145

PATIENT
  Age: 69 Year
  Sex: Male

DRUGS (3)
  1. PARAPLATIN [Suspect]
     Indication: SMALL CELL LUNG CANCER STAGE UNSPECIFIED
     Dosage: CYC 2:240MG,CYC 3:240MG,CYC 5:200MG,CYC 6:165MG(AUC5)
     Route: 041
  2. IRINOTECAN HCL [Suspect]
     Dosage: CYC 2:90MG(60MG/M2),CYC 3:70MG,CYC 5:70MG,CYC 6:70MG(48MG/M2).
  3. AMRUBICIN HCL [Suspect]
     Dosage: CYCLE 4

REACTIONS (5)
  - DIARRHOEA [None]
  - FULL BLOOD COUNT DECREASED [None]
  - PLATELET COUNT DECREASED [None]
  - PLEURAL EFFUSION [None]
  - VOMITING [None]
